FAERS Safety Report 8317140-7 (Version None)
Quarter: 2012Q2

REPORT INFORMATION
  Report Type: 
  Country: None (occurrence: None)
  Receive Date: 20120427
  Receipt Date: 20120423
  Transmission Date: 20120825
  Serious: No
  Sender: FDA-Public Use
  Company Number: PHEH2012US008846

PATIENT
  Age: 73 Year
  Sex: Male

DRUGS (5)
  1. TRIBENZOR [Concomitant]
  2. ZEGERID [Concomitant]
  3. TASIGNA [Suspect]
     Dosage: 400 MG, BID
     Route: 048
     Dates: start: 20120322, end: 20120422
  4. PRIMIDONE [Concomitant]
  5. UROXATRAL [Concomitant]

REACTIONS (2)
  - FATIGUE [None]
  - VOMITING [None]
